FAERS Safety Report 7746947-X (Version None)
Quarter: 2011Q3

REPORT INFORMATION
  Report Type: 
  Country: None (occurrence: None)
  Receive Date: 20110913
  Receipt Date: 20110902
  Transmission Date: 20111222
  Serious: Yes (Other)
  Sender: FDA-Public Use
  Company Number: PHHY2011US39777

PATIENT
  Sex: Male
  Weight: 127.44 kg

DRUGS (17)
  1. PREVACID [Concomitant]
  2. SPIRONOLACTONE [Suspect]
     Indication: HYPERTENSION
     Dosage: 25 MG, DAILY
     Route: 048
  3. SYNTHROID [Concomitant]
     Dosage: UNK UKN, UNK
  4. LASIX [Suspect]
     Indication: OEDEMA
  5. SPIRONOLACTONE [Suspect]
     Indication: OEDEMA
  6. HYDROCHLOROTHIAZIDE [Concomitant]
  7. GLEEVEC [Suspect]
     Indication: CHRONIC MYELOID LEUKAEMIA
     Dosage: 400 MG, DAILY
     Route: 048
     Dates: start: 20100831
  8. SINGULAIR [Concomitant]
     Dosage: 10 MG, DAILY
     Route: 048
  9. ADVAIR DISKUS 100/50 [Concomitant]
     Dosage: UNK UKN, UNK
  10. LASIX [Suspect]
     Indication: HYPERTENSION
     Dosage: 40 MG, TID
     Route: 048
  11. THEOPHYLLINE [Concomitant]
     Indication: CHRONIC OBSTRUCTIVE PULMONARY DISEASE
     Dosage: 600 MG, DAILY
     Route: 048
  12. DOXYCYCLINE [Concomitant]
     Dosage: UNK UKN, UNK
  13. TRIAMTERENE [Concomitant]
     Dosage: UNK UKN, UNK
  14. POTASSIUM CHLORIDE [Concomitant]
     Dosage: 40 MEQ, TID
     Route: 048
  15. ATENOLOL [Concomitant]
     Indication: HYPERTENSION
     Dosage: 25 MG, DAILY
     Route: 048
  16. PREDNISONE [Concomitant]
     Indication: CHRONIC OBSTRUCTIVE PULMONARY DISEASE
     Dosage: 5 MG, DAILY
     Route: 048
  17. PROAIR (FLUTICASONE PROPIONATE) [Concomitant]
     Indication: CHRONIC OBSTRUCTIVE PULMONARY DISEASE
     Dosage: UNK UKN, UNK

REACTIONS (7)
  - BLOOD CREATININE INCREASED [None]
  - BLOOD POTASSIUM INCREASED [None]
  - POLYURIA [None]
  - RENAL DISORDER [None]
  - DIARRHOEA [None]
  - DYSPNOEA [None]
  - EMPHYSEMA [None]
